FAERS Safety Report 18001470 (Version 1)
Quarter: 2020Q3

REPORT INFORMATION
  Report Type: Spontaneous
  Country: DE (occurrence: DE)
  Receive Date: 20200709
  Receipt Date: 20200709
  Transmission Date: 20201103
  Serious: Yes (Death, Hospitalization, Other)
  Sender: FDA-Public Use
  Company Number: DE-GILEAD-2020-0480973

PATIENT
  Age: 62 Year
  Sex: Female
  Weight: 55.5 kg

DRUGS (1)
  1. YESCARTA [Suspect]
     Active Substance: AXICABTAGENE CILOLEUCEL
     Indication: PRODUCT USED FOR UNKNOWN INDICATION
     Dosage: 68 ML
     Route: 065
     Dates: start: 20200423, end: 20200423

REACTIONS (3)
  - Dysmetria [Recovered/Resolved]
  - Disease progression [Fatal]
  - Tremor [Recovered/Resolved]

NARRATIVE: CASE EVENT DATE: 20200507
